FAERS Safety Report 8797721 (Version 1)
Quarter: 2012Q4

REPORT INFORMATION
  Report Type: 
  Country: CA (occurrence: CA)
  Receive Date: 20120919
  Receipt Date: 20120919
  Transmission Date: 20130627
  Serious: Yes (Disabling)
  Sender: FDA-Public Use
  Company Number: CA-ROCHE-1104803

PATIENT
  Age: 30 Year
  Sex: Male
  Weight: 86 kg

DRUGS (3)
  1. VISMODEGIB [Suspect]
     Indication: MEDULLOBLASTOMA RECURRENT
     Route: 048
     Dates: start: 20120515, end: 20120913
  2. SULFATRIM [Concomitant]
     Indication: INFECTION
     Dosage: 1 tablet daily
     Route: 048
     Dates: start: 201107
  3. VALACICLOVIR [Concomitant]
     Indication: INFECTION
     Route: 048
     Dates: start: 201108

REACTIONS (2)
  - Alopecia [Not Recovered/Not Resolved]
  - Neoplasm progression [Not Recovered/Not Resolved]
